FAERS Safety Report 12296436 (Version 2)
Quarter: 2016Q2

REPORT INFORMATION
  Report Type: Spontaneous
  Country: US (occurrence: US)
  Receive Date: 20160422
  Receipt Date: 20160426
  Transmission Date: 20160815
  Serious: No
  Sender: FDA-Public Use
  Company Number: US-TEVA-653654USA

PATIENT
  Age: 57 Year
  Sex: Female
  Weight: 99.88 kg

DRUGS (12)
  1. EFFEXOR [Concomitant]
     Active Substance: VENLAFAXINE HYDROCHLORIDE
  2. WELLBUTRIN [Concomitant]
     Active Substance: BUPROPION HYDROCHLORIDE
  3. IRON [Concomitant]
     Active Substance: IRON
  4. NUVIGIL [Suspect]
     Active Substance: ARMODAFINIL
     Indication: HYPERSOMNIA
     Dosage: 500 MILLIGRAM DAILY; 250MG +150MG
     Dates: start: 201309
  5. PRIMIDONE. [Concomitant]
     Active Substance: PRIMIDONE
  6. MULTIVITAMIN [Concomitant]
     Active Substance: VITAMINS
  7. RITALIN [Concomitant]
     Active Substance: METHYLPHENIDATE HYDROCHLORIDE
     Indication: HYPERSOMNIA
  8. FOLIC ACID. [Concomitant]
     Active Substance: FOLIC ACID
  9. CELEXA [Concomitant]
     Active Substance: CITALOPRAM HYDROBROMIDE
  10. GABAPENTIN. [Concomitant]
     Active Substance: GABAPENTIN
  11. FLEXERIL [Concomitant]
     Active Substance: CYCLOBENZAPRINE HYDROCHLORIDE
  12. OXYMORPHONE [Concomitant]
     Active Substance: OXYMORPHONE

REACTIONS (7)
  - Opiates positive [Unknown]
  - Drug ineffective [Unknown]
  - Bone pain [Unknown]
  - Hepatic enzyme abnormal [Unknown]
  - Musculoskeletal chest pain [Unknown]
  - Somnolence [Unknown]
  - Road traffic accident [Unknown]

NARRATIVE: CASE EVENT DATE: 201603
